FAERS Safety Report 19802235 (Version 1)
Quarter: 2021Q3

REPORT INFORMATION
  Report Type: Spontaneous
  Country: US (occurrence: US)
  Receive Date: 20210907
  Receipt Date: 20210907
  Transmission Date: 20211014
  Serious: Yes (Death)
  Sender: FDA-Public Use
  Company Number: None

PATIENT
  Age: 68 Year
  Sex: Female

DRUGS (16)
  1. METOPROLOL TARTRATE 25MG TAB [Concomitant]
  2. LOSARTAN 100MG TAB [Concomitant]
     Active Substance: LOSARTAN
  3. NAPROXEN 500MG TAB [Concomitant]
  4. DICLOFENAC 1% GEL [Concomitant]
     Active Substance: DICLOFENAC
  5. HYDRALAZINE 100MG TAB [Concomitant]
  6. HYDROCODONE/ACETAMINOPHEN 5?325MG TAB [Concomitant]
     Active Substance: ACETAMINOPHEN\HYDROCODONE
  7. LORAZEPAM 1MG TAB [Concomitant]
     Active Substance: LORAZEPAM
  8. PANTOPRAZOLE 40MG TAB [Concomitant]
  9. LOKELMA [Suspect]
     Active Substance: SODIUM ZIRCONIUM CYCLOSILICATE
     Indication: HYPERKALAEMIA
     Dosage: ?          OTHER FREQUENCY:NON?DIALYSIS DAYS;?
     Route: 048
     Dates: start: 20210318
  10. MULTIVITAMIN [Concomitant]
     Active Substance: VITAMINS
  11. HUMALOG [Concomitant]
     Active Substance: INSULIN LISPRO
  12. TEMAZEPAM 15MG CAP [Concomitant]
  13. PAROXETINE 10MG TAB [Concomitant]
  14. ZOLPIDEM 5MG TAB [Concomitant]
  15. LIDOCAINE 5% PATCH [Concomitant]
     Active Substance: LIDOCAINE
  16. ROSUVASTATIN 40 MG TAB [Concomitant]

REACTIONS (1)
  - Death [None]

NARRATIVE: CASE EVENT DATE: 20210902
